FAERS Safety Report 8848132 (Version 2)
Quarter: 2012Q4

REPORT INFORMATION
  Report Type: 
  Country: US (occurrence: US)
  Receive Date: 20121018
  Receipt Date: 20121023
  Transmission Date: 20130627
  Serious: No
  Sender: FDA-Public Use
  Company Number: US-VERTEX PHARMACEUTICAL INC.-2012-022213

PATIENT
  Age: 36 Year
  Sex: Male
  Weight: 69 kg

DRUGS (3)
  1. VX-950 [Suspect]
     Indication: HEPATITIS C
     Dosage: 750 mg, tid
     Route: 048
     Dates: start: 20120928
  2. RIBASPHERE [Concomitant]
     Indication: HEPATITIS C
     Dosage: 3 tabs in am, 2 in pm
     Route: 048
     Dates: start: 20120928
  3. PEGASYS [Concomitant]
     Indication: HEPATITIS C
     Dosage: 180 ?g, weekly
     Route: 058
     Dates: start: 20120928

REACTIONS (7)
  - Influenza like illness [Unknown]
  - Dizziness [Unknown]
  - Abdominal distension [Unknown]
  - Pyrexia [Unknown]
  - Fatigue [Unknown]
  - Anorectal discomfort [Unknown]
  - Nausea [Unknown]
